FAERS Safety Report 7522082-0 (Version None)
Quarter: 2011Q2

REPORT INFORMATION
  Report Type: 
  Country: None (occurrence: None)
  Receive Date: 20110520
  Receipt Date: 20110418
  Transmission Date: 20111010
  Serious: Yes (Other)
  Sender: FDA-Public Use
  Company Number: 2011028317

PATIENT
  Age: 46 Year
  Sex: Female
  Weight: 104.3273 kg

DRUGS (14)
  1. CYMBALTA [Concomitant]
  2. AMBIEN [Concomitant]
  3. LORCET-HD [Concomitant]
  4. HIZENTRA [Suspect]
     Indication: IMMUNODEFICIENCY COMMON VARIABLE
     Dosage: (16 G 1X/WEEK, 4 GM 20 ML VIAL: 80 ML IN 2 - 2.5 HOURS SUBCUTANEOUS), (SUBCUTANEOUS)
     Route: 058
     Dates: start: 20110414
  5. FLEXERIL [Concomitant]
  6. HYDROXYZINE [Concomitant]
  7. SPIRONOLACTONE [Concomitant]
  8. LASIX [Concomitant]
  9. NEURONTIN [Concomitant]
  10. PROMETHAZINE [Concomitant]
  11. LOPRESSOR [Concomitant]
  12. POTASSIUM (POTASSIUM) [Concomitant]
  13. ACETAMINOPHEN [Concomitant]
  14. VERAPAMIL [Concomitant]

REACTIONS (6)
  - INFUSION SITE SWELLING [None]
  - INFUSION SITE PAIN [None]
  - INFUSION SITE EXTRAVASATION [None]
  - URINARY TRACT INFECTION [None]
  - FATIGUE [None]
  - INFUSION SITE ERYTHEMA [None]
